FAERS Safety Report 17792760 (Version 1)
Quarter: 2020Q2

REPORT INFORMATION
  Report Type: Spontaneous
  Country: FR (occurrence: FR)
  Receive Date: 20200515
  Receipt Date: 20200515
  Transmission Date: 20200714
  Serious: Yes (Hospitalization)
  Sender: FDA-Public Use
  Company Number: FR-PFIZER INC-2020191283

PATIENT
  Age: 65 Year
  Sex: Male
  Weight: 112 kg

DRUGS (11)
  1. ATORVASTATIN CALCIUM. [Suspect]
     Active Substance: ATORVASTATIN CALCIUM
     Dosage: 20 MG, 1X/DAY
     Route: 048
     Dates: end: 20200409
  2. ALIMEMAZINE TARTRATE [Suspect]
     Active Substance: TRIMEPRAZINE
     Indication: PSYCHOTIC DISORDER
     Dosage: 15 DROP, 1X/DAY
     Route: 048
     Dates: end: 20200409
  3. TIAPRIDE HYDROCHLORIDE [Suspect]
     Active Substance: TIAPRIDE HYDROCHLORIDE
     Indication: PSYCHOTIC DISORDER
     Dosage: 125 MG MORNING, AFTERNOON AND 50 MG IN THE EVENING
     Route: 048
     Dates: end: 20200410
  4. MIANSERINE HCL [Concomitant]
     Active Substance: MIANSERIN HYDROCHLORIDE
     Dosage: 60 MG, 1X/DAY
     Route: 048
  5. SILODOSINE [Concomitant]
     Active Substance: SILODOSIN
     Dosage: 8 MG, 1X/DAY
     Route: 048
  6. ACETYLLEUCINE [Concomitant]
     Active Substance: ACETYLLEUCINE
     Dosage: 1500 MG, 1X/DAY
     Route: 048
  7. PANTOPRAZOLE SODIUM SESQUIHYDRATE [Concomitant]
     Active Substance: PANTOPRAZOLE SODIUM
     Dosage: 20 MG, 1X/DAY
     Route: 048
  8. TROPATEPINE HYDROCHLORIDE [Concomitant]
     Active Substance: TROPATEPINE HYDROCHLORIDE
     Dosage: 20 MG, 1X/DAY
     Route: 048
  9. PREGABALIN. [Suspect]
     Active Substance: PREGABALIN
     Dosage: 150 MG, 1X/DAY
     Route: 048
     Dates: end: 20200410
  10. HALOPERIDOL. [Suspect]
     Active Substance: HALOPERIDOL
     Indication: PSYCHOTIC DISORDER
     Dosage: 5 MG IN THE MORNING, AFTERNOON AND 2.5 MG IN THE EVENING
     Route: 048
     Dates: end: 20200410
  11. BROMAZEPAM [Concomitant]
     Active Substance: BROMAZEPAM
     Dosage: 6 MG, 1X/DAY
     Route: 048

REACTIONS (3)
  - Extrapyramidal disorder [Recovering/Resolving]
  - Rhabdomyolysis [Recovered/Resolved]
  - Pyrexia [Recovered/Resolved]

NARRATIVE: CASE EVENT DATE: 20200406
